FAERS Safety Report 7425756-5 (Version None)
Quarter: 2011Q2

REPORT INFORMATION
  Report Type: 
  Country: None (occurrence: None)
  Receive Date: 20110420
  Receipt Date: 20101214
  Transmission Date: 20111010
  Serious: Yes (Hospitalization, Other)
  Sender: FDA-Public Use
  Company Number: JP-GENZYME-FLUD-1000550

PATIENT
  Sex: Female
  Weight: 43 kg

DRUGS (36)
  1. REBAMIPIDE [Concomitant]
     Indication: GASTRITIS PROPHYLAXIS
     Dosage: UNK
     Dates: start: 20100312
  2. PENTAMIDINE ISETHIONATE [Concomitant]
     Indication: ANTIFUNGAL PROPHYLAXIS
     Dosage: UNK
     Dates: start: 20100501, end: 20100501
  3. TRIMETHOPRIM + SULFAMETHOXAZOLE [Concomitant]
     Indication: ANTIFUNGAL PROPHYLAXIS
     Dosage: UNK
     Dates: start: 20100607
  4. METHYLPREDNISOLONE SODIUM SUCCINATE [Concomitant]
     Indication: PYREXIA
  5. CHLORPHENIRAMINE MALEATE [Concomitant]
     Indication: DYSPNOEA
  6. FLUDARA [Suspect]
     Indication: APLASTIC ANAEMIA
     Dosage: UNK
     Route: 065
     Dates: start: 20100314, end: 20100317
  7. MESNA [Concomitant]
     Indication: PROPHYLAXIS
     Dosage: UNK
     Dates: start: 20100314, end: 20100317
  8. PREDNISOLONE [Concomitant]
     Indication: APLASTIC ANAEMIA
     Dosage: UNK
     Dates: start: 20100314, end: 20100317
  9. TACROLIMUS [Concomitant]
     Indication: PROPHYLAXIS AGAINST GRAFT VERSUS HOST DISEASE
     Dosage: UNK
     Dates: start: 20100318
  10. CANDESARTAN CILEXETIL [Concomitant]
     Indication: HYPERTENSION
     Dosage: UNK
     Dates: start: 20100402, end: 20100415
  11. MAGNESIUM SULFATE [Concomitant]
     Indication: CONSTIPATION PROPHYLAXIS
     Dosage: UNK
     Dates: start: 20100322, end: 20100430
  12. RANITIDINE HYDROCHLORIDE [Concomitant]
     Indication: VOMITING
     Dosage: UNK
     Dates: start: 20100312, end: 20100312
  13. CHLORPHENIRAMINE MALEATE [Concomitant]
     Indication: PYREXIA
     Dosage: UNK
     Dates: start: 20100312, end: 20100312
  14. THYMOGLOBULIN [Suspect]
     Indication: PREMEDICATION
     Dosage: 105 MG, ONCE
     Route: 042
     Dates: start: 20100312, end: 20100313
  15. LEVOFLOXACIN [Concomitant]
     Indication: ANTIBIOTIC PROPHYLAXIS
     Dosage: UNK
     Dates: start: 20100306, end: 20100422
  16. ACYCLOVIR [Concomitant]
     Indication: ANTIVIRAL PROPHYLAXIS
     Dosage: UNK
     Dates: start: 20100312, end: 20100625
  17. HYDROXYZINE HYDROCHLORIDE [Concomitant]
     Indication: PROPHYLAXIS OF NAUSEA AND VOMITING
     Dosage: UNK
     Dates: start: 20100316, end: 20100319
  18. DILTIAZEM HCL [Concomitant]
     Indication: HYPERTENSION
     Dosage: UNK
     Dates: start: 20100319, end: 20100322
  19. INSULIN HUMAN [Concomitant]
     Indication: DIABETES MELLITUS
     Dosage: UNK
     Dates: start: 20100322, end: 20100406
  20. FILGRASTIM [Concomitant]
     Indication: APLASTIC ANAEMIA
     Dosage: UNK
     Dates: start: 20100326, end: 20100405
  21. MICAFUNGIN SODIUM [Concomitant]
     Indication: ANTIFUNGAL PROPHYLAXIS
     Dosage: UNK
     Dates: start: 20100312, end: 20100329
  22. PLATELETS, CONCENTRATED [Concomitant]
     Indication: APLASTIC ANAEMIA
     Dosage: UNK
     Dates: start: 20090222, end: 20100414
  23. GRANISETRON HCL [Concomitant]
     Indication: PROPHYLAXIS OF NAUSEA AND VOMITING
     Dosage: UNK
     Dates: start: 20100310, end: 20100317
  24. CYCLOPHOSPHAMIDE [Concomitant]
     Indication: APLASTIC ANAEMIA
     Dosage: UNK
     Dates: start: 20100314, end: 20100317
  25. METHOTREXATE [Concomitant]
     Indication: PROPHYLAXIS AGAINST GRAFT VERSUS HOST DISEASE
     Dosage: UNK
     Dates: start: 20100320, end: 20100330
  26. NICARDIPINE HYDROCHLORIDE [Concomitant]
     Indication: HYPERTENSION
     Dosage: UNK
     Dates: start: 20100322, end: 20100402
  27. AMLODIPINE BESILATE [Concomitant]
     Indication: HYPERTENSION
     Dosage: UNK
     Dates: start: 20100330
  28. RED BLOOD CELLS, CONCENTRATED [Concomitant]
     Indication: APLASTIC ANAEMIA
     Dosage: UNK
     Dates: start: 20090224, end: 20100405
  29. ACETAMINOPHEN [Concomitant]
     Indication: PYREXIA
     Dosage: UNK
     Dates: start: 20100312, end: 20100421
  30. URSODIOL [Concomitant]
     Indication: PROPHYLAXIS
     Dosage: UNK
     Dates: start: 20100101, end: 20100620
  31. METHYLPREDNISOLONE SODIUM SUCCINATE [Concomitant]
     Indication: DYSPNOEA
  32. ACYCLOVIR [Concomitant]
  33. VOGLIBOSE [Concomitant]
     Indication: DIABETES MELLITUS
     Dosage: UNK
     Dates: start: 20090408
  34. RABEPRAZOLE SODIUM [Concomitant]
     Indication: PROPHYLAXIS AGAINST GASTROINTESTINAL ULCER
     Dosage: UNK
     Dates: start: 20100322
  35. ACETAMINOPHEN [Concomitant]
     Indication: DYSPNOEA
  36. CHLORPHENIRAMINE MALEATE [Concomitant]
     Indication: BACK PAIN

REACTIONS (17)
  - LIVER DISORDER [None]
  - HYPOKALAEMIA [None]
  - URTICARIA [None]
  - STOMATITIS [None]
  - BACK PAIN [None]
  - HEADACHE [None]
  - NAUSEA [None]
  - PRURITUS [None]
  - PYREXIA [None]
  - ASPERGILLUS TEST POSITIVE [None]
  - VOMITING [None]
  - CYTOMEGALOVIRUS TEST POSITIVE [None]
  - CANDIDA TEST POSITIVE [None]
  - DIARRHOEA [None]
  - ACUTE GRAFT VERSUS HOST DISEASE IN SKIN [None]
  - HYPERURICAEMIA [None]
  - RASH [None]
